FAERS Safety Report 15426911 (Version 1)
Quarter: 2018Q3

REPORT INFORMATION
  Report Type: Report from Study
  Country: US (occurrence: US)
  Receive Date: 20180925
  Receipt Date: 20180925
  Transmission Date: 20181010
  Serious: Yes (Hospitalization, Other)
  Sender: FDA-Public Use
  Company Number: US-ACTELION-A-US2018-166153

PATIENT
  Age: 73 Year
  Sex: Female
  Weight: 38.95 kg

DRUGS (3)
  1. TRACLEER [Suspect]
     Active Substance: BOSENTAN
     Indication: PULMONARY ARTERIAL HYPERTENSION
     Dosage: 125 MG, BID
     Route: 048
  2. TYVASO [Concomitant]
     Active Substance: TREPROSTINIL
  3. DILTIAZEM. [Concomitant]
     Active Substance: DILTIAZEM

REACTIONS (7)
  - Bronchitis [Unknown]
  - Urinary tract infection [Unknown]
  - Hypercapnia [Unknown]
  - Hypoxia [Unknown]
  - Sinusitis [Unknown]
  - Nasopharyngitis [Unknown]
  - Blood glucose decreased [Unknown]
